FAERS Safety Report 5019161-9 (Version None)
Quarter: 2006Q2

REPORT INFORMATION
  Report Type: 
  Country: None (occurrence: None)
  Receive Date: 20060531
  Receipt Date: 20060509
  Transmission Date: 20061013
  Serious: Yes (Death)
  Sender: FDA-Public Use
  Company Number: 225598

PATIENT
  Sex: Female

DRUGS (3)
  1. HERCEPTIN [Suspect]
     Indication: BREAST CANCER METASTATIC
     Dosage: 6 MG/KG, Q3W, INTRAVENOUS
     Route: 042
  2. NAVELBINE [Concomitant]
  3. XELODA [Concomitant]

REACTIONS (2)
  - ANAPHYLACTIC SHOCK [None]
  - PULMONARY OEDEMA [None]
